FAERS Safety Report 9520961 (Version 1)
Quarter: 2013Q3

REPORT INFORMATION
  Report Type: Spontaneous
  Country: US (occurrence: US)
  Receive Date: 20130913
  Receipt Date: 20130913
  Transmission Date: 20140515
  Serious: No
  Sender: FDA-Public Use
  Company Number: US-PFIZER INC-2013263838

PATIENT
  Sex: Female

DRUGS (3)
  1. PRISTIQ [Suspect]
     Dosage: UNK, 2X/DAY
  2. PRISTIQ [Suspect]
     Dosage: UNK, 1X/DAY
  3. EFFEXOR [Suspect]
     Dosage: UNK

REACTIONS (4)
  - Intentional drug misuse [Unknown]
  - Feeling abnormal [Unknown]
  - Malaise [Unknown]
  - Drug ineffective [Unknown]
